FAERS Safety Report 6580438-7 (Version None)
Quarter: 2010Q1

REPORT INFORMATION
  Report Type: 
  Country: None (occurrence: None)
  Receive Date: 20100212
  Receipt Date: 20100205
  Transmission Date: 20100710
  Serious: Yes (Hospitalization)
  Sender: FDA-Public Use
  Company Number: PHHY2010BR06623

PATIENT
  Age: 73 Year
  Sex: Female

DRUGS (1)
  1. EXELON [Suspect]
     Dosage: 6 MG, UNK

REACTIONS (5)
  - FEELING ABNORMAL [None]
  - MALAISE [None]
  - NAUSEA [None]
  - VIRAL INFECTION [None]
  - VOMITING [None]
